FAERS Safety Report 25047445 (Version 2)
Quarter: 2025Q3

REPORT INFORMATION
  Report Type: Spontaneous
  Country: US (occurrence: US)
  Receive Date: 20250306
  Receipt Date: 20250708
  Transmission Date: 20251020
  Serious: Yes (Hospitalization, Other)
  Sender: GRIFOLS
  Company Number: US-IGSA-BIG0033382

PATIENT
  Age: 56 Year
  Sex: Male

DRUGS (3)
  1. GAMUNEX-C [Suspect]
     Active Substance: HUMAN IMMUNOGLOBULIN G
     Indication: Immunodeficiency common variable
     Route: 042
     Dates: start: 20250220, end: 20250220
  2. GAMUNEX-C [Suspect]
     Active Substance: HUMAN IMMUNOGLOBULIN G
     Indication: Chronic kidney disease
     Dosage: 60 GRAM, Q.2WK.
     Route: 042
     Dates: start: 20230907
  3. GAMUNEX-C [Suspect]
     Active Substance: HUMAN IMMUNOGLOBULIN G
     Indication: Off label use

REACTIONS (8)
  - Flank pain [Unknown]
  - Chromaturia [Unknown]
  - Diarrhoea [Unknown]
  - Panic reaction [Unknown]
  - Nausea [Unknown]
  - Insomnia [Unknown]
  - Vomiting [Unknown]
  - Pneumonia [Unknown]

NARRATIVE: CASE EVENT DATE: 20250220
